FAERS Safety Report 6903261-X (Version None)
Quarter: 2010Q3

REPORT INFORMATION
  Report Type: 
  Country: None (occurrence: None)
  Receive Date: 20100803
  Receipt Date: 20080828
  Transmission Date: 20110219
  Serious: No
  Sender: FDA-Public Use
  Company Number: US-PFIZER INC-2008073207

PATIENT
  Sex: Male
  Weight: 93.18 kg

DRUGS (3)
  1. LYRICA [Suspect]
     Indication: PHANTOM PAIN
     Dates: start: 20080801
  2. NEURONTIN [Suspect]
  3. OXYCONTIN [Concomitant]

REACTIONS (2)
  - DYSPEPSIA [None]
  - VISION BLURRED [None]
